FAERS Safety Report 15449811 (Version 5)
Quarter: 2022Q2

REPORT INFORMATION
  Report Type: Report from Study
  Country: JP (occurrence: None)
  Receive Date: 20181001
  Receipt Date: 20220629
  Transmission Date: 20220721
  Serious: Yes (Hospitalization)
  Sender: FDA-Public Use
  Company Number: JP-ROCHE-2189727

PATIENT
  Age: 49 Year
  Sex: Female
  Weight: 65.9 kg

DRUGS (48)
  1. ATEZOLIZUMAB [Suspect]
     Active Substance: ATEZOLIZUMAB
     Indication: Ovarian cancer
     Dosage: ON 10/SEP/2018, SHE RECIEVED LAST DOSE OF ATEZOLIZUMAB PRIOR TO SERIOUS ADVERSE EVENT.
     Route: 042
     Dates: start: 20180502
  2. PACLITAXEL [Suspect]
     Active Substance: PACLITAXEL
     Indication: Ovarian cancer
     Dosage: ON 10/SEP/2018, SHE RECIEVED LAST DOSE OF PACLITAXEL (222 MG) PRIOR TO SERIOUS ADVERSE EVENT.
     Route: 042
     Dates: start: 20180502
  3. CARBOPLATIN [Suspect]
     Active Substance: CARBOPLATIN
     Indication: Ovarian cancer
     Dosage: ON 10/SEP/2018, SHE RECIEVED LAST DOSE OF CARBOPLATIN (636 MG) PRIOR TO SERIOUS ADVERSE EVENT.
     Route: 042
     Dates: start: 20180502
  4. BEVACIZUMAB [Suspect]
     Active Substance: BEVACIZUMAB
     Indication: Ovarian cancer
     Dosage: ON 12/JUN/2018, SHE RECIEVED LAST DOSE OF BEVACIZUMAB (979.5 MG) PRIOR TO SERIOUS ADVERSE EVENT.
     Route: 042
     Dates: start: 20180502
  5. MAGNESIUM CITRATE [Concomitant]
     Active Substance: MAGNESIUM CITRATE
     Dates: start: 20180822, end: 20180823
  6. TAMCETON [Concomitant]
     Dates: start: 20180913, end: 20180922
  7. LOXOPROFEN [Concomitant]
     Active Substance: LOXOPROFEN
     Dates: start: 20180330, end: 20180922
  8. MAGNESIUM OXIDE [Concomitant]
     Active Substance: MAGNESIUM OXIDE
     Indication: Constipation
     Dates: start: 20180501
  9. REBAMIPIDE [Concomitant]
     Active Substance: REBAMIPIDE
     Dates: start: 20180330, end: 20180922
  10. REBAMIPIDE [Concomitant]
     Active Substance: REBAMIPIDE
     Dates: start: 20180825, end: 20181121
  11. SENNOSIDES [Concomitant]
     Active Substance: SENNOSIDES
     Indication: Constipation
     Dates: start: 20180823, end: 20180823
  12. SENNOSIDES [Concomitant]
     Active Substance: SENNOSIDES
     Route: 065
  13. DERMOSOL G [Concomitant]
     Indication: Pruritus
     Route: 061
     Dates: start: 20180509, end: 20180823
  14. OLOPATADINE HYDROCHLORIDE [Concomitant]
     Active Substance: OLOPATADINE HYDROCHLORIDE
     Indication: Pruritus
     Dates: start: 20180509, end: 20180822
  15. OLOPATADINE HYDROCHLORIDE [Concomitant]
     Active Substance: OLOPATADINE HYDROCHLORIDE
     Dates: start: 20180911
  16. PRIMPERAN [Concomitant]
     Active Substance: METOCLOPRAMIDE HYDROCHLORIDE
     Indication: Nausea
     Dates: start: 20180503
  17. BROTIZOLAM [Concomitant]
     Active Substance: BROTIZOLAM
     Indication: Insomnia
     Dates: start: 20180822, end: 20181108
  18. BISACODYL [Concomitant]
     Active Substance: BISACODYL
     Dates: start: 20180824, end: 20180824
  19. BISACODYL [Concomitant]
     Active Substance: BISACODYL
     Dates: start: 20180830, end: 20180830
  20. CALCIUM CHLORIDE ANHYDROUS\POTASSIUM CHLORIDE\SODIUM CHLORIDE\SODIUM L [Concomitant]
     Active Substance: CALCIUM CHLORIDE ANHYDROUS\POTASSIUM CHLORIDE\SODIUM CHLORIDE\SODIUM LACTATE
     Dates: start: 20180824, end: 20180824
  21. KENKETSU ALBUMIN [Concomitant]
     Route: 042
     Dates: start: 20180824, end: 20180824
  22. VOLUVEN [Concomitant]
     Active Substance: HYDROXYETHYL STARCH 130/0.4
     Dates: start: 20180824, end: 20180824
  23. CALCIUM GLUCONATE\DEXTROSE\MAGNESIUM CHLORIDE\POTASSIUM CHLORIDE\SODIU [Concomitant]
     Active Substance: CALCIUM GLUCONATE\DEXTROSE\MAGNESIUM CHLORIDE\POTASSIUM CHLORIDE\SODIUM ACETATE\SODIUM CHLORIDE\TRIS
     Dates: start: 20180824, end: 20180824
  24. CEFOTIAM HYDROCHLORIDE [Concomitant]
     Active Substance: CEFOTIAM HYDROCHLORIDE
     Route: 042
     Dates: start: 20180824, end: 20180828
  25. EPHEDRINE HYDROCHLORIDE [Concomitant]
     Active Substance: EPHEDRINE HYDROCHLORIDE
     Dates: start: 20180824, end: 20180824
  26. NEOSYNESIN KOWA [Concomitant]
     Dates: start: 20180824, end: 20180824
  27. ACETAMINOPHEN [Concomitant]
     Active Substance: ACETAMINOPHEN
     Indication: Enteritis
     Dates: start: 20180824, end: 20180827
  28. ACETAMINOPHEN [Concomitant]
     Active Substance: ACETAMINOPHEN
     Dates: start: 20180923, end: 20180923
  29. DIPRIVAN [Concomitant]
     Active Substance: PROPOFOL
     Dates: start: 20180824, end: 20180824
  30. XYLOCAINE [Concomitant]
     Active Substance: LIDOCAINE HYDROCHLORIDE
     Dates: start: 20180824, end: 20180824
  31. REMIFENTANIL [Concomitant]
     Active Substance: REMIFENTANIL
     Route: 042
     Dates: start: 20180824, end: 20180824
  32. LEVOBUPIVACAINE HYDROCHLORIDE [Concomitant]
     Active Substance: LEVOBUPIVACAINE HYDROCHLORIDE
     Route: 042
     Dates: start: 20180824, end: 20180827
  33. FENTANYL [Concomitant]
     Active Substance: FENTANYL
     Dates: start: 20180824, end: 20180827
  34. ROCURONIUM BROMIDE [Concomitant]
     Active Substance: ROCURONIUM BROMIDE
     Route: 042
     Dates: start: 20180824, end: 20180824
  35. HUMAN RED BLOOD CELL [Concomitant]
     Active Substance: HUMAN RED BLOOD CELL
     Indication: Anaemia
     Dates: start: 20180824, end: 20180824
  36. HEPARIN CALCIUM [Concomitant]
     Active Substance: HEPARIN CALCIUM
     Dates: start: 20180824, end: 20180824
  37. GASTER [Concomitant]
     Active Substance: FAMOTIDINE
     Indication: Enteritis
     Dates: start: 20180824, end: 20180825
  38. GASTER [Concomitant]
     Active Substance: FAMOTIDINE
     Dates: start: 20180910, end: 20180910
  39. GASTER [Concomitant]
     Active Substance: FAMOTIDINE
     Dates: start: 20180923, end: 20180923
  40. PANTOL [PANTHENOL] [Concomitant]
     Dates: start: 20180825, end: 20180827
  41. LOXOPROFEN SODIUM [Concomitant]
     Active Substance: LOXOPROFEN SODIUM
     Dates: start: 20180825, end: 20181121
  42. CALONAL [Concomitant]
     Active Substance: ACETAMINOPHEN
     Dates: start: 20180827, end: 20180912
  43. TRAMADOL [Concomitant]
     Active Substance: TRAMADOL
     Dates: start: 20180828, end: 20180912
  44. DEXAMETHASONE SODIUM PHOSPHATE [Concomitant]
     Active Substance: DEXAMETHASONE SODIUM PHOSPHATE
     Route: 042
     Dates: start: 20180910, end: 20180910
  45. ALOXI [Concomitant]
     Active Substance: PALONOSETRON HYDROCHLORIDE
     Dates: start: 20180910, end: 20180910
  46. DIPHENHYDRAMINE [Concomitant]
     Active Substance: DIPHENHYDRAMINE
     Dates: start: 20180910, end: 20180910
  47. TRAMCET [Concomitant]
     Active Substance: ACETAMINOPHEN\TRAMADOL
     Indication: Stoma site pain
     Dates: start: 20180913, end: 20181121
  48. HEPARIN SODIUM [Concomitant]
     Active Substance: HEPARIN SODIUM
     Dates: start: 20180824, end: 20180824

REACTIONS (1)
  - Enteritis [Recovered/Resolved]

NARRATIVE: CASE EVENT DATE: 20180919
